FAERS Safety Report 5394774-3 (Version None)
Quarter: 2007Q3

REPORT INFORMATION
  Report Type: 
  Country: None (occurrence: None)
  Receive Date: 20070723
  Receipt Date: 20070712
  Transmission Date: 20080115
  Serious: Yes (Other)
  Sender: FDA-Public Use
  Company Number: US-PFIZER INC-2007058083

PATIENT
  Sex: Female
  Weight: 96.6 kg

DRUGS (2)
  1. CELEBREX [Suspect]
     Indication: CHEST PAIN
     Dates: start: 19990101, end: 20010101
  2. CELEBREX [Suspect]
     Indication: DIZZINESS

REACTIONS (3)
  - CEREBROVASCULAR ACCIDENT [None]
  - DIZZINESS [None]
  - PAIN [None]
